FAERS Safety Report 5171612-5 (Version None)
Quarter: 2006Q4

REPORT INFORMATION
  Report Type: 
  Country: None (occurrence: None)
  Receive Date: 20061213
  Receipt Date: 20061207
  Transmission Date: 20070319
  Serious: Yes (Hospitalization)
  Sender: FDA-Public Use
  Company Number: GB-ROCHE-474403

PATIENT
  Age: 65 Year
  Sex: Male
  Weight: 58 kg

DRUGS (11)
  1. CAPECITABINE [Suspect]
     Route: 048
     Dates: start: 20060815, end: 20060930
  2. OXALIPLATIN [Suspect]
     Dosage: NO FREQUENCY REPORTED.
     Route: 042
     Dates: start: 20060815, end: 20060926
  3. ASPIRIN [Concomitant]
  4. CAPTOPRIL [Concomitant]
  5. CITALOPRAM HYDROBROMIDE [Concomitant]
  6. DEXAMETHASONE [Concomitant]
     Route: 048
  7. DOMPERIDONE [Concomitant]
     Route: 048
  8. ISOSORBIDE MONONITRATE [Concomitant]
  9. PANTOPRAZOLE SODIUM [Concomitant]
  10. PRAVASTATIN [Concomitant]
  11. TENORMIN [Concomitant]

REACTIONS (4)
  - CONFUSIONAL STATE [None]
  - CONVULSION [None]
  - FATIGUE [None]
  - HALLUCINATION [None]
